FAERS Safety Report 10232497 (Version 2)
Quarter: 2014Q4

REPORT INFORMATION
  Report Type: Spontaneous
  Country: US (occurrence: US)
  Receive Date: 20140612
  Receipt Date: 20141114
  Transmission Date: 20150528
  Serious: Yes (Other)
  Sender: FDA-Public Use
  Company Number: US-SA-2014SA072329

PATIENT
  Age: 81 Year
  Sex: Female

DRUGS (2)
  1. SOLOSTAR [Concomitant]
     Active Substance: DEVICE
  2. LANTUS SOLOSTAR [Suspect]
     Active Substance: INSULIN GLARGINE
     Indication: TYPE 2 DIABETES MELLITUS
     Dosage: START: AT LEAST 20 YEARS DOSE:45 UNIT(S)
     Route: 065

REACTIONS (2)
  - Macular degeneration [Unknown]
  - Visual impairment [Unknown]

NARRATIVE: CASE EVENT DATE: 2011
